FAERS Safety Report 5622909-3 (Version None)
Quarter: 2008Q1

REPORT INFORMATION
  Report Type: 
  Country: None (occurrence: None)
  Receive Date: 20080206
  Receipt Date: 20080121
  Transmission Date: 20080703
  Serious: Yes (Death, Life-Threatening, Hospitalization)
  Sender: FDA-Public Use
  Company Number: DSA_31140_2008

PATIENT
  Age: 41 Year
  Sex: Female

DRUGS (1)
  1. DILTIAZEM [Suspect]
     Indication: HYPERTENSION
     Dosage: (33600 MG 1X ORAL), (300 MG QD ORAL)
     Route: 048

REACTIONS (7)
  - CARDIAC ARREST [None]
  - CARDIOGENIC SHOCK [None]
  - COMPLETED SUICIDE [None]
  - HYPOKALAEMIA [None]
  - METABOLIC ACIDOSIS [None]
  - OVERDOSE [None]
  - PULSE ABSENT [None]
